FAERS Safety Report 17852037 (Version 10)
Quarter: 2021Q1

REPORT INFORMATION
  Report Type: Spontaneous
  Country: US (occurrence: US)
  Receive Date: 20200602
  Receipt Date: 20210311
  Transmission Date: 20210419
  Serious: Yes (Other)
  Sender: FDA-Public Use
  Company Number: US-GLAXOSMITHKLINE-US2020AMR059874

PATIENT
  Age: 70 Year
  Sex: Female

DRUGS (9)
  1. ZEJULA [Suspect]
     Active Substance: NIRAPARIB
     Dosage: 100 MG, DAILY
     Dates: start: 20200331
  2. ZEJULA [Suspect]
     Active Substance: NIRAPARIB
     Dosage: 200 MG, QD
     Route: 048
  3. ZEJULA [Suspect]
     Active Substance: NIRAPARIB
     Dosage: 100 MG, QD
     Route: 048
  4. ZEJULA [Suspect]
     Active Substance: NIRAPARIB
     Dosage: 200 MG, QD
  5. ZEJULA [Suspect]
     Active Substance: NIRAPARIB
     Indication: OVARIAN CANCER
     Dosage: 100 MG, QD, PM WITH FOOD
     Dates: start: 20200202
  6. ZEJULA [Suspect]
     Active Substance: NIRAPARIB
     Dosage: 200 MG, QD
     Route: 048
  7. ZEJULA [Suspect]
     Active Substance: NIRAPARIB
     Dosage: 100 MG, QD
  8. ZEJULA [Suspect]
     Active Substance: NIRAPARIB
     Dosage: 100 MG, QD
     Dates: start: 20201022
  9. ZEJULA [Suspect]
     Active Substance: NIRAPARIB
     Dosage: 200 MG,DAILY
     Dates: start: 20200204

REACTIONS (12)
  - Renal impairment [Not Recovered/Not Resolved]
  - Haematochezia [Unknown]
  - Neuropathy peripheral [Unknown]
  - Constipation [Unknown]
  - Platelet count decreased [Not Recovered/Not Resolved]
  - Off label use [Unknown]
  - Decreased appetite [Unknown]
  - Gastrointestinal disorder [Unknown]
  - Fatigue [Unknown]
  - Laboratory test abnormal [Unknown]
  - Haemoglobin decreased [Recovered/Resolved]
  - Colonoscopy abnormal [Unknown]

NARRATIVE: CASE EVENT DATE: 20200204
